FAERS Safety Report 14918243 (Version 1)
Quarter: 2018Q2

REPORT INFORMATION
  Report Type: Spontaneous
  Country: GB (occurrence: GB)
  Receive Date: 20180521
  Receipt Date: 20180521
  Transmission Date: 20180711
  Serious: Yes (Life-Threatening, Hospitalization)
  Sender: FDA-Public Use
  Company Number: GB-TEVA-2018-GB-894682

PATIENT
  Age: 31 Year
  Sex: Female

DRUGS (14)
  1. ISOSORBIDE MONONITRATE. [Concomitant]
     Active Substance: ISOSORBIDE MONONITRATE
     Indication: CARDIAC FAILURE ACUTE
     Dosage: TDS
     Route: 065
  2. METHYLPREDNISOLONE. [Suspect]
     Active Substance: METHYLPREDNISOLONE
     Indication: SYSTEMIC LUPUS ERYTHEMATOSUS
     Route: 042
  3. SPIRONOLACTONE. [Concomitant]
     Active Substance: SPIRONOLACTONE
     Indication: CARDIAC FAILURE ACUTE
     Route: 065
  4. GLYCERYL TRINITRATE [Concomitant]
     Active Substance: NITROGLYCERIN
     Route: 065
  5. CYCLOPHOSPHAMIDE. [Suspect]
     Active Substance: CYCLOPHOSPHAMIDE
     Dosage: FORTNIGHTLY
     Route: 041
  6. FUROSEMIDE. [Concomitant]
     Active Substance: FUROSEMIDE
     Indication: CARDIAC FAILURE ACUTE
     Dosage: 120/80 MG BD [SIC]
     Route: 065
  7. IVABRADINE [Concomitant]
     Active Substance: IVABRADINE
     Indication: CARDIAC FAILURE ACUTE
     Route: 065
  8. AZATHIOPRINE. [Suspect]
     Active Substance: AZATHIOPRINE
     Indication: SYSTEMIC LUPUS ERYTHEMATOSUS
     Route: 065
  9. METHYLPREDNISOLONE. [Suspect]
     Active Substance: METHYLPREDNISOLONE
     Dosage: THREE COURSES
     Route: 042
  10. RITUXIMAB. [Concomitant]
     Active Substance: RITUXIMAB
     Route: 065
  11. CYCLOPHOSPHAMIDE. [Suspect]
     Active Substance: CYCLOPHOSPHAMIDE
     Indication: SYSTEMIC LUPUS ERYTHEMATOSUS
     Route: 065
  12. BISOPROLOL [Concomitant]
     Active Substance: BISOPROLOL
     Indication: CARDIAC FAILURE ACUTE
     Route: 065
  13. MYCOPHENOLATE MOFETIL. [Suspect]
     Active Substance: MYCOPHENOLATE MOFETIL
     Indication: SYSTEMIC LUPUS ERYTHEMATOSUS
     Route: 065
  14. HYDROXYCHLOROQUINE [Concomitant]
     Active Substance: HYDROXYCHLOROQUINE
     Route: 065

REACTIONS (11)
  - Cerebral infarction [Recovered/Resolved]
  - Pulmonary tuberculosis [Recovered/Resolved]
  - Systemic lupus erythematosus [Recovered/Resolved]
  - Tuberculosis of central nervous system [Recovered/Resolved]
  - Hydrocephalus [Recovered/Resolved]
  - Cardiac failure acute [Recovered/Resolved]
  - Meningitis [Recovered/Resolved]
  - Tuberculosis [Recovered/Resolved]
  - Condition aggravated [Recovered/Resolved]
  - Lupus myocarditis [Recovered/Resolved]
  - Cerebral ischaemia [Recovered/Resolved]
